FAERS Safety Report 7820851-0 (Version None)
Quarter: 2011Q4

REPORT INFORMATION
  Report Type: 
  Country: None (occurrence: None)
  Receive Date: 20111013
  Receipt Date: 20110929
  Transmission Date: 20120403
  Serious: Yes (Hospitalization)
  Sender: FDA-Public Use
  Company Number: DSA_47781_2011

PATIENT
  Age: 84 Year
  Sex: Female

DRUGS (24)
  1. HUMAN INSULATARD [Concomitant]
  2. KALCIPOS-D [Concomitant]
  3. NOVOMIX [Concomitant]
  4. ACETAMINOPHEN [Concomitant]
  5. SPIRIVA [Concomitant]
  6. OMEPRAZOLE [Concomitant]
  7. FUROSEMIDE [Concomitant]
  8. PROPAVAN [Concomitant]
  9. ACETYLCYSTEINE [Concomitant]
  10. ASPIRIN [Concomitant]
  11. TRAMADOL HCL [Concomitant]
  12. LEVOTHYROXINE SODIUM [Concomitant]
  13. SYMBICORT [Concomitant]
  14. DIGOXIN [Concomitant]
  15. ENALAPRIL MALEATE [Suspect]
     Indication: CARDIAC FAILURE
     Dosage: (DF ORAL)
     Dates: end: 20110701
  16. ENALAPRIL MALEATE [Suspect]
     Indication: CARDIOMEGALY
     Dosage: (DF ORAL)
     Dates: end: 20110701
  17. FUROSEMIDE [Suspect]
     Indication: CARDIAC FAILURE
     Dosage: (DF ORAL)
     Route: 048
     Dates: end: 20110701
  18. FUROSEMIDE [Suspect]
     Indication: CARDIOMEGALY
     Dosage: (DF ORAL)
     Route: 048
     Dates: end: 20110701
  19. SPIRONOLACTONE [Suspect]
     Indication: CARDIOMEGALY
     Dosage: (DF ORAL)
     Route: 048
     Dates: end: 20110701
  20. SPIRONOLACTONE [Suspect]
     Indication: CARDIAC FAILURE
     Dosage: (DF ORAL)
     Route: 048
     Dates: end: 20110701
  21. ALENATO [Concomitant]
  22. NIFEREX /012114501 [Concomitant]
  23. ATENOLOL [Concomitant]
  24. ZOPICLONE [Concomitant]

REACTIONS (2)
  - HYPERKALAEMIA [None]
  - DEHYDRATION [None]
